FAERS Safety Report 9662686 (Version 2)
Quarter: 2013Q4

REPORT INFORMATION
  Report Type: Spontaneous
  Country: US (occurrence: US)
  Receive Date: 20131031
  Receipt Date: 20131031
  Transmission Date: 20140711
  Serious: No
  Sender: FDA-Public Use
  Company Number: US-PURDUE-USA-2010-0048567

PATIENT
  Sex: Male

DRUGS (1)
  1. OXYCONTIN (NDA 22-272) [Suspect]
     Indication: BACK PAIN
     Dosage: TWO 80MG TABLETS AND ONE 30MG TABLET IN THE MORNING, AFTERNOON AND EVENING
     Route: 048
     Dates: start: 20100928

REACTIONS (11)
  - Drug withdrawal syndrome [Unknown]
  - Unevaluable event [Unknown]
  - Abdominal distension [Unknown]
  - Headache [Unknown]
  - Inadequate analgesia [Unknown]
  - Hyperhidrosis [Unknown]
  - Diarrhoea [Unknown]
  - Vomiting [Unknown]
  - Depression [Unknown]
  - Decreased appetite [Unknown]
  - Insomnia [Unknown]
